FAERS Safety Report 6699449-6 (Version None)
Quarter: 2010Q2

REPORT INFORMATION
  Report Type: 
  Country: None (occurrence: None)
  Receive Date: 20100426
  Receipt Date: 20100412
  Transmission Date: 20101027
  Serious: Yes (Death, Life-Threatening, Hospitalization, Other)
  Sender: FDA-Public Use
  Company Number: CLOF-10584

PATIENT
  Age: 59 Year
  Sex: Female

DRUGS (18)
  1. CLOFARABINE OR PLACEBO (CODE NOT BROKEN) [Suspect]
     Indication: ACUTE MYELOID LEUKAEMIA
     Dosage: BLINDED, INFORMATION WITHHELD.
     Dates: start: 20070522, end: 20070526
  2. CYTARABINE [Suspect]
     Indication: ACUTE MYELOID LEUKAEMIA
     Dosage: 1000 MG/M2, QDX5, INTRAVENOUS
     Route: 042
     Dates: start: 20070522, end: 20070526
  3. POTASSIUM CHLORIDE [Concomitant]
  4. HYDROXYUREA [Concomitant]
  5. PROMETHAZINE [Concomitant]
  6. POTASSIUM CHLORIDE SYRUP [Concomitant]
  7. POTASSIUM CHLORIDE [Concomitant]
  8. ONDANSETRON [Concomitant]
  9. LEVOTHYROXINE SODIUM [Concomitant]
  10. GRANISETRON (GRANISETRON) [Concomitant]
  11. ONDANSETRON [Concomitant]
  12. ACETAMINOPHEN [Concomitant]
  13. LORAZEPAM [Concomitant]
  14. APREPITANT (APREPITANT) [Concomitant]
  15. PHYTONADIONE [Concomitant]
  16. METRONIDAZOLE [Concomitant]
  17. VANCOMYCIN [Concomitant]
  18. LOPERAMIDE (LOPERAMIDE) [Concomitant]

REACTIONS (34)
  - ACUTE MYELOID LEUKAEMIA [None]
  - ATELECTASIS [None]
  - CARDIAC FAILURE [None]
  - CONJUNCTIVAL HAEMORRHAGE [None]
  - CULTURE URINE POSITIVE [None]
  - DIARRHOEA [None]
  - DISEASE PROGRESSION [None]
  - FEBRILE NEUTROPENIA [None]
  - GENERAL PHYSICAL HEALTH DETERIORATION [None]
  - GLOMERULAR FILTRATION RATE DECREASED [None]
  - HILAR LYMPHADENOPATHY [None]
  - HYPOTHYROIDISM [None]
  - INFECTION [None]
  - INTERNATIONAL NORMALISED RATIO INCREASED [None]
  - LIVER FUNCTION TEST ABNORMAL [None]
  - LUNG CONSOLIDATION [None]
  - MYOCARDIAL ISCHAEMIA [None]
  - MYOSITIS [None]
  - NEPHROPATHY [None]
  - NEUTROPENIA [None]
  - NEUTROPENIC COLITIS [None]
  - OSTEOSCLEROSIS [None]
  - PANCYTOPENIA [None]
  - PETECHIAE [None]
  - PLEURAL EFFUSION [None]
  - PNEUMONIA [None]
  - RASH ERYTHEMATOUS [None]
  - RENAL FAILURE ACUTE [None]
  - RESPIRATORY DISTRESS [None]
  - RESPIRATORY TRACT INFECTION FUNGAL [None]
  - SCAR [None]
  - SEPTIC SHOCK [None]
  - SUPRAVENTRICULAR TACHYCARDIA [None]
  - URINARY TRACT INFECTION ENTEROCOCCAL [None]
